FAERS Safety Report 8541719-0 (Version None)
Quarter: 2012Q3

REPORT INFORMATION
  Report Type: 
  Country: None (occurrence: None)
  Receive Date: 20120726
  Receipt Date: 20120726
  Transmission Date: 20120928
  Serious: Yes (Death)
  Sender: FDA-Public Use
  Company Number: PF-BAYER-2012-074841

PATIENT
  Age: 66 Year
  Sex: Male

DRUGS (5)
  1. PLAVIX [Concomitant]
  2. FLUVASTATIN SODIUM [Concomitant]
     Dosage: 20 MG, UNK
  3. LEVITRA [Suspect]
     Dosage: 10 MG, UNK
  4. IRBESARTAN [Concomitant]
     Dosage: 150 MG, UNK
  5. ALLOPURINOL [Concomitant]
     Dosage: 100 MG, UNK

REACTIONS (1)
  - DEATH [None]
